FAERS Safety Report 25896078 (Version 1)
Quarter: 2025Q4

REPORT INFORMATION
  Report Type: Spontaneous
  Country: US (occurrence: None)
  Receive Date: 20251007
  Receipt Date: 20251007
  Transmission Date: 20260118
  Serious: Yes (Death)
  Sender: FDA-CTU
  Company Number: None

PATIENT
  Age: 71 Year
  Sex: Female
  Weight: 113 kg

DRUGS (2)
  1. ENOXAPARIN [Suspect]
     Active Substance: ENOXAPARIN
     Indication: Heart valve replacement
     Dosage: FREQUENCY : TWICE A DAY;?
     Route: 058
     Dates: start: 20250724, end: 20250729
  2. WARFARIN [Concomitant]
     Active Substance: WARFARIN

REACTIONS (11)
  - Anticoagulation drug level above therapeutic [None]
  - Hypotension [None]
  - Retroperitoneal haemorrhage [None]
  - Retroperitoneal haematoma [None]
  - Psoas abscess [None]
  - Fluid retention [None]
  - International normalised ratio decreased [None]
  - Haemoglobin decreased [None]
  - Haemodynamic instability [None]
  - Renal disorder [None]
  - Hepatic failure [None]

NARRATIVE: CASE EVENT DATE: 20250729
